FAERS Safety Report 8225943-2 (Version None)
Quarter: 2012Q1

REPORT INFORMATION
  Report Type: 
  Country: None (occurrence: None)
  Receive Date: 20120321
  Receipt Date: 20120309
  Transmission Date: 20120608
  Serious: Yes (Hospitalization)
  Sender: FDA-Public Use
  Company Number: US-PFIZER INC-2011156486

PATIENT
  Sex: Female
  Weight: 91.61 kg

DRUGS (8)
  1. ACETAMINOPHEN AND OXYCODONE HCL [Concomitant]
     Indication: PAIN
     Dosage: AS NEEDED
     Route: 048
  2. POTASSIUM CHLORIDE [Concomitant]
     Indication: SUPPLEMENTATION THERAPY
     Dosage: UNK
     Route: 048
  3. CRIZOTINIB [Suspect]
     Indication: NON-SMALL CELL LUNG CANCER
     Dosage: 250 MG, 2X/DAY
     Route: 048
     Dates: start: 20110609, end: 20110616
  4. IBUPROFEN [Concomitant]
     Indication: PAIN
     Dosage: 3X/DAY
     Route: 048
     Dates: start: 20110401
  5. FERROUS SULFATE TAB [Concomitant]
     Indication: SUPPLEMENTATION THERAPY
     Dosage: 3X/DAY
     Route: 048
  6. CRIZOTINIB [Suspect]
     Dosage: 200 MG, 2X/DAY
     Route: 048
     Dates: start: 20110706, end: 20110710
  7. ONDANSETRON [Concomitant]
     Indication: NAUSEA
     Dosage: UNK
     Route: 048
     Dates: start: 20100101
  8. MEDROXYPROGESTERONE [Concomitant]
     Indication: MENORRHAGIA
     Dosage: 1X/DAY
     Route: 048
     Dates: start: 20110101

REACTIONS (1)
  - MUSCULOSKELETAL PAIN [None]
